FAERS Safety Report 12653167 (Version 6)
Quarter: 2017Q1

REPORT INFORMATION
  Report Type: Report from Study
  Country: US (occurrence: US)
  Receive Date: 20160815
  Receipt Date: 20170214
  Transmission Date: 20170428
  Serious: Yes (Hospitalization)
  Sender: FDA-Public Use
  Company Number: US-ROCHE-1811519

PATIENT
  Age: 69 Year
  Sex: Male
  Weight: 123.8 kg

DRUGS (24)
  1. ATEZOLIZUMAB [Suspect]
     Active Substance: ATEZOLIZUMAB
     Indication: RENAL CELL CARCINOMA
     Dosage: DATE OF MOST RECENT DOSE PRIOR TO THE EVENT ONSET: 16/JUN/2016
     Route: 042
     Dates: start: 20160526
  2. FLUTICASONE FUROATE [Concomitant]
     Active Substance: FLUTICASONE FUROATE
     Indication: HYPERSENSITIVITY
     Dosage: 27.5 OTHER
     Route: 050
     Dates: start: 20150619
  3. BEVACIZUMAB [Suspect]
     Active Substance: BEVACIZUMAB
     Indication: RENAL CELL CARCINOMA
     Dosage: DATE OF MOST RECENT DOSE PRIOR TO THE EVENT ONSET: 16/JUN/2016 OF 1857 MG?DOSE PER PROTOCOL
     Route: 042
     Dates: start: 20160526
  4. SIMVASTATIN. [Concomitant]
     Active Substance: SIMVASTATIN
     Indication: HYPERLIPIDAEMIA
     Route: 048
     Dates: start: 20151231
  5. SYNTHROID [Concomitant]
     Active Substance: LEVOTHYROXINE SODIUM
     Indication: HYPOTHYROIDISM
     Dosage: 125 OTHER
     Route: 048
     Dates: start: 20150624
  6. PREDNISONE. [Concomitant]
     Active Substance: PREDNISONE
     Indication: MUSCULAR WEAKNESS
     Route: 048
     Dates: start: 20160718
  7. METOPROLOL. [Concomitant]
     Active Substance: METOPROLOL
     Indication: MUSCULAR WEAKNESS
     Route: 048
     Dates: start: 20160707
  8. SENNA [Concomitant]
     Active Substance: SENNA LEAF\SENNOSIDES\SENNOSIDES A AND B
     Indication: CONSTIPATION PROPHYLAXIS
     Route: 048
     Dates: start: 20160618
  9. FUROSEMIDE. [Concomitant]
     Active Substance: FUROSEMIDE
     Indication: MUSCULAR WEAKNESS
     Route: 042
     Dates: start: 20160708, end: 20160718
  10. CALCIUM CITRATE [Concomitant]
     Active Substance: CALCIUM CITRATE
     Indication: PROPHYLAXIS
     Route: 048
     Dates: start: 20150128
  11. FOSINOPRIL SODIUM. [Concomitant]
     Active Substance: FOSINOPRIL SODIUM
     Indication: HYPERTENSION
     Route: 048
     Dates: start: 20150619
  12. PANTOPRAZOLE [Concomitant]
     Active Substance: PANTOPRAZOLE SODIUM
     Indication: PROPHYLAXIS
     Route: 048
     Dates: start: 20150619, end: 20160718
  13. OMEPRAZOL [Concomitant]
     Active Substance: OMEPRAZOLE
     Indication: PROPHYLAXIS
     Route: 048
     Dates: start: 20160719
  14. PLAVIX [Concomitant]
     Active Substance: CLOPIDOGREL BISULFATE
     Indication: MYOCARDITIS
     Route: 048
     Dates: start: 20160628
  15. PREDNISONE. [Concomitant]
     Active Substance: PREDNISONE
     Indication: MYOSITIS
  16. FUROSEMIDE. [Concomitant]
     Active Substance: FUROSEMIDE
     Indication: FATIGUE
  17. GLUCOPHAGE XR [Concomitant]
     Active Substance: METFORMIN HYDROCHLORIDE
     Indication: DIABETES MELLITUS
     Route: 048
     Dates: start: 20150619
  18. METOPROLOL. [Concomitant]
     Active Substance: METOPROLOL
     Indication: FATIGUE
  19. MELATONIN [Concomitant]
     Active Substance: MELATONIN
     Indication: PROPHYLAXIS
     Route: 048
     Dates: start: 20160717
  20. COLACE [Concomitant]
     Active Substance: DOCUSATE SODIUM
     Indication: CONSTIPATION PROPHYLAXIS
     Route: 048
     Dates: start: 20150128
  21. ASPIRIN. [Concomitant]
     Active Substance: ASPIRIN
     Indication: MYOCARDITIS
     Route: 048
     Dates: start: 20160628
  22. PREDNISONE. [Concomitant]
     Active Substance: PREDNISONE
     Indication: FATIGUE
  23. FUROSEMIDE. [Concomitant]
     Active Substance: FUROSEMIDE
     Indication: MYOSITIS
  24. METOPROLOL. [Concomitant]
     Active Substance: METOPROLOL
     Indication: MYOSITIS

REACTIONS (3)
  - Hyperkalaemia [Recovered/Resolved]
  - Asthenia [Unknown]
  - Dyspnoea [Unknown]

NARRATIVE: CASE EVENT DATE: 20160729
